FAERS Safety Report 17468088 (Version 1)
Quarter: 2020Q1

REPORT INFORMATION
  Report Type: Spontaneous
  Country: US (occurrence: US)
  Receive Date: 20200225
  Receipt Date: 20200225
  Transmission Date: 20200409
  Serious: No
  Sender: FDA-Public Use
  Company Number: None

PATIENT
  Age: 81 Year
  Sex: Male

DRUGS (1)
  1. TRIMIX (ALPROSTADIL\PAPAVERINE\PHENTOLAMINE) [Suspect]
     Active Substance: ALPROSTADIL\PAPAVERINE\PHENTOLAMINE
     Route: 017

REACTIONS (4)
  - Dizziness [None]
  - Therapeutic product effect decreased [None]
  - Headache [None]
  - Blood pressure decreased [None]

NARRATIVE: CASE EVENT DATE: 20200204
